FAERS Safety Report 8525418-7 (Version None)
Quarter: 2012Q3

REPORT INFORMATION
  Report Type: 
  Country: None (occurrence: None)
  Receive Date: 20120720
  Receipt Date: 20120712
  Transmission Date: 20120928
  Serious: Yes (Other)
  Sender: FDA-Public Use
  Company Number: PHHY2012CA049666

PATIENT
  Sex: Female

DRUGS (2)
  1. LOPRESSOR [Suspect]
     Dosage: 50 MG
  2. METOPROLOL SUCCINATE [Suspect]

REACTIONS (2)
  - SYNCOPE [None]
  - FATIGUE [None]
